FAERS Safety Report 8617014-8 (Version None)
Quarter: 2012Q3

REPORT INFORMATION
  Report Type: 
  Country: None (occurrence: None)
  Receive Date: 20120823
  Receipt Date: 20120813
  Transmission Date: 20120928
  Serious: No
  Sender: FDA-Public Use
  Company Number: US-009507513-2012SP028640

PATIENT

DRUGS (2)
  1. VITAMINS (UNSPECIFIED) [Concomitant]
     Dosage: UNK
  2. IMPLANON [Suspect]
     Indication: CONTRACEPTION

REACTIONS (4)
  - OBESITY [None]
  - ABDOMINAL PAIN [None]
  - MENSTRUATION IRREGULAR [None]
  - CHOLELITHIASIS [None]
